FAERS Safety Report 10427042 (Version 1)
Quarter: 2014Q3

REPORT INFORMATION
  Report Type: Spontaneous
  Country: US (occurrence: None)
  Receive Date: 20140902
  Receipt Date: 20140902
  Transmission Date: 20150326
  Serious: Yes (Other)
  Sender: FDA-Public Use
  Company Number: None

PATIENT
  Age: 17 Year
  Sex: Female
  Weight: 88.91 kg

DRUGS (1)
  1. METHYLPHENIDATE [Suspect]
     Active Substance: METHYLPHENIDATE
     Indication: ATTENTION DEFICIT/HYPERACTIVITY DISORDER
     Dosage: 1 QD PO
     Route: 048
     Dates: start: 20091211, end: 20120709

REACTIONS (3)
  - Insomnia [None]
  - Drug ineffective [None]
  - Oral mucosal blistering [None]

NARRATIVE: CASE EVENT DATE: 20120612
